FAERS Safety Report 9909614 (Version 1)
Quarter: 2014Q1

REPORT INFORMATION
  Report Type: Spontaneous
  Country: ES (occurrence: ES)
  Receive Date: 20140219
  Receipt Date: 20140219
  Transmission Date: 20141002
  Serious: Yes (Hospitalization)
  Sender: FDA-Public Use
  Company Number: ES-JNJFOC-20140208351

PATIENT
  Age: 64 Year
  Sex: Female

DRUGS (3)
  1. DOXORUBICIN [Suspect]
     Indication: THYMOMA
     Route: 042
  2. CISPLATIN [Suspect]
     Indication: THYMOMA
     Route: 065
  3. CYCLOPHOSPHAMIDE [Suspect]
     Indication: THYMOMA
     Route: 065

REACTIONS (4)
  - Cardiac tamponade [Unknown]
  - Pericardial effusion [Unknown]
  - Drug ineffective for unapproved indication [Unknown]
  - Off label use [Unknown]
